FAERS Safety Report 19179599 (Version 1)
Quarter: 2021Q2

REPORT INFORMATION
  Report Type: Spontaneous
  Country: US (occurrence: US)
  Receive Date: 20210423
  Receipt Date: 20210423
  Transmission Date: 20210717
  Serious: Yes (Other)
  Sender: FDA-Public Use
  Company Number: None

PATIENT
  Sex: Female

DRUGS (1)
  1. LEVOTHYROXINE CAPSULES [Suspect]
     Active Substance: LEVOTHYROXINE

REACTIONS (4)
  - Malaise [None]
  - Fatigue [None]
  - Depression [None]
  - Weight increased [None]
